FAERS Safety Report 22913124 (Version 2)
Quarter: 2023Q4

REPORT INFORMATION
  Report Type: Spontaneous
  Country: AU (occurrence: AU)
  Receive Date: 20230906
  Receipt Date: 20231017
  Transmission Date: 20240109
  Serious: Yes (Life-Threatening, Hospitalization, Other)
  Sender: FDA-Public Use
  Company Number: AU-PFIZER INC-PV202300150649

PATIENT
  Sex: Female

DRUGS (1)
  1. METHOTREXATE SODIUM [Suspect]
     Active Substance: METHOTREXATE SODIUM
     Dosage: UNK

REACTIONS (5)
  - Drug ineffective [Unknown]
  - Haemophagocytic lymphohistiocytosis [Unknown]
  - Pyrexia [Unknown]
  - Haemophagocytic lymphohistiocytosis [Unknown]
  - Lung disorder [Unknown]
